FAERS Safety Report 21825440 (Version 1)
Quarter: 2023Q1

REPORT INFORMATION
  Report Type: Spontaneous
  Country: US (occurrence: None)
  Receive Date: 20230105
  Receipt Date: 20230105
  Transmission Date: 20230418
  Serious: Yes (Hospitalization)
  Sender: FDA-Public Use
  Company Number: None

PATIENT
  Sex: Female

DRUGS (11)
  1. MYCOPHENOLIC ACID [Suspect]
     Active Substance: MYCOPHENOLIC ACID
     Indication: Renal transplant
     Dosage: 250 MG ORAL??TAKE 2 CAPSULES (500 MG TOTAL) BY MOUTH TWICE DAILY?
     Route: 048
     Dates: start: 20190719
  2. ASPIRIN LOW TAB EC [Concomitant]
  3. CELLCEPT [Concomitant]
     Active Substance: MYCOPHENOLATE MOFETIL
  4. CYCLOSPORINE [Concomitant]
     Active Substance: CYCLOSPORINE
  5. CYCLOSPORINE MOD CAP [Concomitant]
  6. HYDROCO/APAP TAB [Concomitant]
  7. IRON TAB [Concomitant]
  8. MAGNESIUM TAB [Concomitant]
  9. OYST-CAL D TAB [Concomitant]
  10. SULFAMETHOXAZOLE\TRIMETHOPRIM [Concomitant]
     Active Substance: SULFAMETHOXAZOLE\TRIMETHOPRIM
  11. VITAMIN C TAB [Concomitant]

REACTIONS (1)
  - COVID-19 [None]
